FAERS Safety Report 8858608 (Version 1)
Quarter: 2012Q4

REPORT INFORMATION
  Report Type: 
  Country: US (occurrence: US)
  Receive Date: 20121024
  Receipt Date: 20121024
  Transmission Date: 20130627
  Serious: Yes (Death)
  Sender: FDA-Public Use
  Company Number: US-ROCHE-1128391

PATIENT
  Sex: Female

DRUGS (12)
  1. HERCEPTIN [Suspect]
     Indication: BREAST CANCER FEMALE
     Route: 065
     Dates: start: 20000817
  2. HERCEPTIN [Suspect]
     Route: 065
  3. HERCEPTIN [Suspect]
     Route: 065
     Dates: start: 20001207
  4. HERCEPTIN [Suspect]
     Route: 065
     Dates: start: 20001214
  5. HERCEPTIN [Suspect]
     Route: 065
     Dates: start: 20010201
  6. HERCEPTIN [Suspect]
     Route: 065
     Dates: start: 20010215
  7. HERCEPTIN [Suspect]
     Route: 065
     Dates: start: 20010222
  8. HERCEPTIN [Suspect]
     Route: 065
     Dates: start: 20010301
  9. HERCEPTIN [Suspect]
     Route: 065
     Dates: start: 20010322
  10. HERCEPTIN [Suspect]
     Route: 065
     Dates: start: 20010329
  11. HERCEPTIN [Suspect]
     Route: 065
     Dates: start: 20010405
  12. NAVELBINE [Concomitant]

REACTIONS (2)
  - Death [Fatal]
  - Pain [Unknown]
